FAERS Safety Report 9503746 (Version 1)
Quarter: 2013Q1

REPORT INFORMATION
  Report Type: Spontaneous
  Country: US (occurrence: None)
  Receive Date: 20130225
  Receipt Date: 20130225
  Transmission Date: 20140127
  Serious: No
  Sender: FDA-Public Use
  Company Number: 367932

PATIENT
  Age: 58 Year
  Sex: Female

DRUGS (1)
  1. VICTOZA [Suspect]
     Indication: GLUCOSE TOLERANCE IMPAIRED
     Dosage: 1.2 MG, DAILY. SUBCUTANEOUS
     Route: 058
     Dates: start: 20121213

REACTIONS (2)
  - Blood glucose decreased [None]
  - Blood glucose fluctuation [None]
